FAERS Safety Report 8010771-3 (Version None)
Quarter: 2011Q4

REPORT INFORMATION
  Report Type: 
  Country: None (occurrence: None)
  Receive Date: 20111228
  Receipt Date: 20111222
  Transmission Date: 20120403
  Serious: Yes (Death, Life-Threatening, Hospitalization)
  Sender: FDA-Public Use
  Company Number: JP-ASTRAZENECA-2011SE78271

PATIENT
  Age: 25099 Day
  Sex: Male

DRUGS (12)
  1. PLAVIX [Suspect]
     Indication: ACUTE CORONARY SYNDROME
     Dosage: TWO TIMES A DAY
     Route: 048
     Dates: start: 20111019
  2. RINDERON-VG [Suspect]
     Indication: ECZEMA
     Dosage: AS RQUIRED
     Route: 003
  3. FAMOTIDINE [Suspect]
     Indication: GASTRITIS PROPHYLAXIS
     Route: 048
     Dates: start: 20111019
  4. CARVEDILOL [Suspect]
     Indication: TACHYCARDIA
     Route: 048
     Dates: start: 20111219
  5. LOCOID [Suspect]
     Indication: ECZEMA
     Dosage: AS REQUIRED
     Route: 003
  6. CLARITIN [Suspect]
     Indication: ECZEMA
     Route: 048
     Dates: start: 20111018
  7. BUFFERIN [Suspect]
     Indication: ACUTE CORONARY SYNDROME
     Route: 048
     Dates: start: 20111019
  8. SIGMART [Suspect]
     Indication: CARDIOVASCULAR EVENT PROPHYLAXIS
     Route: 048
     Dates: start: 20111027
  9. LIPITOR [Suspect]
     Indication: HYPERLIPIDAEMIA
     Route: 048
     Dates: start: 20111020
  10. PLACEBO [Suspect]
     Indication: ACUTE CORONARY SYNDROME
     Dosage: ONCE DAILY
     Route: 048
     Dates: start: 20111019
  11. MAGNESIUM OXIDE [Suspect]
     Indication: CONSTIPATION
     Dosage: AS REQUIRED
     Route: 048
     Dates: start: 20111024
  12. HYDROPHILIC [Suspect]
     Indication: ECZEMA
     Dosage: AS REQUIRED
     Route: 003

REACTIONS (1)
  - VENTRICULAR FIBRILLATION [None]
